FAERS Safety Report 13882677 (Version 1)
Quarter: 2017Q3

REPORT INFORMATION
  Report Type: Spontaneous
  Country: GB (occurrence: GB)
  Receive Date: 20170818
  Receipt Date: 20170818
  Transmission Date: 20171127
  Serious: Yes (Other)
  Sender: FDA-Public Use
  Company Number: GB-TEVA-795928ACC

PATIENT
  Age: 86 Year
  Sex: Female

DRUGS (21)
  1. SPIRONOLACTONE. [Suspect]
     Active Substance: SPIRONOLACTONE
     Dosage: EVERY MORNING.
     Route: 048
     Dates: start: 20170721, end: 20170723
  2. MELATONIN [Suspect]
     Active Substance: MELATONIN
     Dosage: AT NIGHT.
     Route: 048
     Dates: start: 20170721, end: 20170723
  3. AZATHIOPRINE. [Concomitant]
     Active Substance: AZATHIOPRINE
  4. RANITIDINE. [Concomitant]
     Active Substance: RANITIDINE
  5. ATORVASTATIN [Concomitant]
     Active Substance: ATORVASTATIN
  6. BISOPROLOL [Concomitant]
     Active Substance: BISOPROLOL
  7. OMEPRAZOLE. [Concomitant]
     Active Substance: OMEPRAZOLE
  8. BEZAFIBRATE [Concomitant]
     Active Substance: BEZAFIBRATE
  9. COLECALCIFEROL [Concomitant]
     Active Substance: CHOLECALCIFEROL
  10. PREDNISOLONE. [Concomitant]
     Active Substance: PREDNISOLONE
  11. CYCLIZINE [Concomitant]
     Active Substance: CYCLIZINE
  12. FOLIC ACID. [Concomitant]
     Active Substance: FOLIC ACID
  13. MAGNESIUM ASPARTATE [Concomitant]
     Active Substance: MAGNESIUM ASPARTATE
  14. MIRTAZAPINE. [Suspect]
     Active Substance: MIRTAZAPINE
     Dosage: AT NIGHT.
     Route: 048
     Dates: start: 20170721, end: 20170723
  15. METHYLDOPA. [Suspect]
     Active Substance: METHYLDOPA
     Route: 048
     Dates: start: 20170721, end: 20170723
  16. METOCLOPRAMIDE. [Concomitant]
     Active Substance: METOCLOPRAMIDE
  17. SERTRALINE [Concomitant]
     Active Substance: SERTRALINE HYDROCHLORIDE
  18. WARFARIN [Concomitant]
     Active Substance: WARFARIN
  19. TEMAZEPAM. [Suspect]
     Active Substance: TEMAZEPAM
     Dosage: AT NIGHT.
     Route: 048
     Dates: start: 20170721, end: 20170723
  20. FUROSEMIDE. [Concomitant]
     Active Substance: FUROSEMIDE
  21. PROCHLORPERAZINE. [Concomitant]
     Active Substance: PROCHLORPERAZINE

REACTIONS (4)
  - Somnolence [Recovered/Resolved]
  - Drug prescribing error [Unknown]
  - Blood pressure decreased [Recovered/Resolved]
  - Confusional state [Recovered/Resolved]

NARRATIVE: CASE EVENT DATE: 20170721
